FAERS Safety Report 18887795 (Version 1)
Quarter: 2021Q1

REPORT INFORMATION
  Report Type: Spontaneous
  Country: TH (occurrence: TH)
  Receive Date: 20210212
  Receipt Date: 20210212
  Transmission Date: 20210420
  Serious: Yes (Death)
  Sender: FDA-Public Use
  Company Number: TH-ALLERGAN-2106256US

PATIENT

DRUGS (1)
  1. CEFTAROLINE FOSAMIL ? BP [Suspect]
     Active Substance: CEFTAROLINE FOSAMIL
     Indication: PNEUMONIA
     Dosage: UNK

REACTIONS (1)
  - Pre-existing disease [Fatal]
